FAERS Safety Report 18774526 (Version 1)
Quarter: 2021Q1

REPORT INFORMATION
  Report Type: Spontaneous
  Country: CA (occurrence: CA)
  Receive Date: 20210122
  Receipt Date: 20210122
  Transmission Date: 20210419
  Serious: Yes (Other)
  Sender: FDA-Public Use
  Company Number: CA-ACCORD-214723

PATIENT
  Age: 58 Year
  Sex: Male

DRUGS (9)
  1. COLECALCIFEROL [Concomitant]
     Active Substance: CHOLECALCIFEROL
  2. ATORVASTATIN/ATORVASTATIN CALCIUM [Suspect]
     Active Substance: ATORVASTATIN CALCIUM
     Indication: GLIOBLASTOMA
     Dosage: INTRAVENOUS (NOT OTHERWISE SPECIFIED)
  3. ALENDRONIC ACID [Concomitant]
     Active Substance: ALENDRONIC ACID
  4. NYSTATIN/NYSTATIN/LIPOSOME [Concomitant]
     Active Substance: NYSTATIN
  5. DEXAMETHASONE. [Concomitant]
     Active Substance: DEXAMETHASONE
     Route: 065
  6. ACETYLSALICYLIC ACID [Concomitant]
     Active Substance: ASPIRIN
  7. ETOPOSIDE. [Suspect]
     Active Substance: ETOPOSIDE
     Indication: GLIOBLASTOMA
     Route: 065
  8. CLOBAZAM. [Concomitant]
     Active Substance: CLOBAZAM
  9. LEVETIRACETAM. [Concomitant]
     Active Substance: LEVETIRACETAM

REACTIONS (4)
  - Seizure [Unknown]
  - Nasopharyngitis [Unknown]
  - Malignant neoplasm progression [Unknown]
  - Off label use [Unknown]
